FAERS Safety Report 7602187-6 (Version None)
Quarter: 2011Q3

REPORT INFORMATION
  Report Type: 
  Country: None (occurrence: None)
  Receive Date: 20110711
  Receipt Date: 20110704
  Transmission Date: 20111222
  Serious: No
  Sender: FDA-Public Use
  Company Number: JP-ABBOTT-11P-087-0718282-00

PATIENT
  Sex: Female

DRUGS (8)
  1. AMLODIPINE BESYLATE [Concomitant]
     Indication: RHEUMATOID ARTHRITIS
     Dates: start: 20101130
  2. OMEPRAZOLE [Concomitant]
     Indication: RHEUMATOID ARTHRITIS
     Route: 048
     Dates: start: 20100817
  3. OLMESARTAN MEDOXOMIL [Concomitant]
     Indication: RHEUMATOID ARTHRITIS
     Dates: start: 20101130
  4. ESTRIOL [Concomitant]
     Indication: RHEUMATOID ARTHRITIS
     Dates: start: 20101130
  5. PREDNISOLONE [Concomitant]
     Indication: RHEUMATOID ARTHRITIS
     Route: 048
     Dates: start: 20100511
  6. CELECOXIB [Concomitant]
     Indication: RHEUMATOID ARTHRITIS
     Route: 048
     Dates: start: 20100511
  7. HUMIRA [Suspect]
     Indication: RHEUMATOID ARTHRITIS
     Dates: start: 20110215, end: 20110215
  8. POLAPREZINC [Concomitant]
     Indication: RHEUMATOID ARTHRITIS
     Route: 048
     Dates: start: 20100511

REACTIONS (2)
  - ERYTHEMA [None]
  - GENERALISED ERYTHEMA [None]
